FAERS Safety Report 5210020-5 (Version None)
Quarter: 2006Q4

REPORT INFORMATION
  Report Type: 
  Country: None (occurrence: None)
  Receive Date: 20061130
  Receipt Date: 20060925
  Transmission Date: 20070319
  Serious: Yes (Other)
  Sender: FDA-Public Use
  Company Number: 2006US002205

PATIENT
  Age: 59 Year
  Sex: Male

DRUGS (1)
  1. PROTOPIC [Suspect]
     Indication: SEBORRHOEIC DERMATITIS
     Dosage: BID, TOPICAL
     Route: 061
     Dates: start: 20051103

REACTIONS (1)
  - CRYPTOGENIC ORGANISING PNEUMONIA [None]
